FAERS Safety Report 23601236 (Version 1)
Quarter: 2024Q1

REPORT INFORMATION
  Report Type: Report from Study
  Country: US (occurrence: US)
  Receive Date: 20240306
  Receipt Date: 20240306
  Transmission Date: 20240409
  Serious: Yes (Other)
  Sender: FDA-Public Use
  Company Number: US-002147023-NVSC2024US042317

PATIENT
  Age: 66 Year
  Sex: Male

DRUGS (1)
  1. PLUVICTO [Suspect]
     Active Substance: LUTETIUM LU-177 VIPIVOTIDE TETRAXETAN
     Indication: Prostate cancer
     Dosage: UNK (EVERY 6 WEEKS)
     Route: 042
     Dates: start: 20240220

REACTIONS (6)
  - Dry mouth [Unknown]
  - Dizziness [Unknown]
  - Night sweats [Unknown]
  - Vomiting [Unknown]
  - Pain [Unknown]
  - Asthenia [Unknown]

NARRATIVE: CASE EVENT DATE: 20240220
